FAERS Safety Report 13248959 (Version 1)
Quarter: 2017Q1

REPORT INFORMATION
  Report Type: Spontaneous
  Country: US (occurrence: US)
  Receive Date: 20170218
  Receipt Date: 20170218
  Transmission Date: 20170428
  Serious: No
  Sender: FDA-Public Use
  Company Number: US-ALLERGAN-1638346US

PATIENT
  Age: 90 Year
  Sex: Female
  Weight: 50.79 kg

DRUGS (1)
  1. RESTASIS [Suspect]
     Active Substance: CYCLOSPORINE
     Indication: PHOTOPHOBIA
     Dosage: 2 GTT, BID
     Route: 047
     Dates: start: 201602, end: 20160307

REACTIONS (2)
  - Off label use [Unknown]
  - Lacrimation increased [Recovered/Resolved]

NARRATIVE: CASE EVENT DATE: 201602
